FAERS Safety Report 22520359 (Version 2)
Quarter: 2023Q4

REPORT INFORMATION
  Report Type: Spontaneous
  Country: DE (occurrence: DE)
  Receive Date: 20230605
  Receipt Date: 20231024
  Transmission Date: 20240110
  Serious: Yes (Hospitalization, Other)
  Sender: FDA-Public Use
  Company Number: None

PATIENT
  Age: 24 Year
  Sex: Female
  Weight: 58 kg

DRUGS (1)
  1. VYEPTI [Suspect]
     Active Substance: EPTINEZUMAB-JJMR
     Indication: Migraine with aura
     Dosage: 100 MG
     Route: 041
     Dates: start: 202211, end: 202302

REACTIONS (11)
  - Cutaneous vasculitis [Recovering/Resolving]
  - Skin necrosis [Not Recovered/Not Resolved]
  - Neuralgia [Not Recovered/Not Resolved]
  - Wound [Recovering/Resolving]
  - Weight decreased [Recovering/Resolving]
  - Sensory disturbance [Recovering/Resolving]
  - Pruritus [Not Recovered/Not Resolved]
  - Dysaesthesia [Not Recovered/Not Resolved]
  - Allodynia [Not Recovered/Not Resolved]
  - Oedema [Not Recovered/Not Resolved]
  - Paraesthesia [Not Recovered/Not Resolved]

NARRATIVE: CASE EVENT DATE: 20221201
